FAERS Safety Report 15639644 (Version 1)
Quarter: 2018Q4

REPORT INFORMATION
  Report Type: Spontaneous
  Country: US (occurrence: US)
  Receive Date: 20181120
  Receipt Date: 20181120
  Transmission Date: 20190205
  Serious: Yes (Other)
  Sender: FDA-Public Use
  Company Number: US-PFIZER INC-2014211118

PATIENT
  Age: 72 Year
  Sex: Female
  Weight: 68 kg

DRUGS (29)
  1. TOPROL XL [Suspect]
     Active Substance: METOPROLOL SUCCINATE
     Dosage: 25 MG, 1X/DAY
  2. VITAMINS NOS [Concomitant]
     Active Substance: VITAMINS
     Indication: CELLULITIS
     Dosage: UNK
     Dates: start: 201406
  3. VESICARE [Concomitant]
     Active Substance: SOLIFENACIN SUCCINATE
     Indication: BLADDER DISORDER
  4. OMEPRAZOLE. [Suspect]
     Active Substance: OMEPRAZOLE
     Indication: HERNIA
     Dosage: 20 MG, 2X/DAY
     Route: 048
     Dates: start: 2012
  5. BACTRIM [Concomitant]
     Active Substance: SULFAMETHOXAZOLE\TRIMETHOPRIM
     Indication: CELLULITIS
     Dosage: UNK
     Route: 048
  6. VESICARE [Concomitant]
     Active Substance: SOLIFENACIN SUCCINATE
     Indication: CELLULITIS
     Dosage: UNK
     Route: 048
  7. ELIQUIS [Concomitant]
     Active Substance: APIXABAN
     Indication: THROMBOSIS
  8. NEXIUM [Suspect]
     Active Substance: ESOMEPRAZOLE MAGNESIUM
     Indication: HIATUS HERNIA
     Dosage: UNK
     Route: 048
     Dates: start: 1998
  9. OMEPRAZOLE. [Suspect]
     Active Substance: OMEPRAZOLE
     Indication: ABDOMINAL DISCOMFORT
     Dosage: OTC, 20 MG DAILY
     Route: 048
     Dates: start: 2012
  10. XANAX [Concomitant]
     Active Substance: ALPRAZOLAM
     Indication: ANXIETY
     Dosage: 0.25 MG, AS NEEDED
     Route: 048
     Dates: start: 2009
  11. MYRBETRIQ [Concomitant]
     Active Substance: MIRABEGRON
     Indication: CELLULITIS
     Dosage: UNK
     Route: 048
  12. NEXIUM [Suspect]
     Active Substance: ESOMEPRAZOLE MAGNESIUM
     Dosage: 40 MG, 1X/DAY
     Route: 048
  13. METOPROLOL TARTRATE. [Suspect]
     Active Substance: METOPROLOL TARTRATE
     Indication: CARDIAC DISORDER
     Dosage: 25 MG, DAILY
     Route: 048
     Dates: start: 200901
  14. TOPROL XL [Suspect]
     Active Substance: METOPROLOL SUCCINATE
     Indication: BLOOD PRESSURE ABNORMAL
     Dosage: 50 MG, DAILY
     Route: 048
     Dates: start: 2010, end: 201311
  15. TYLENOL [Concomitant]
     Active Substance: ACETAMINOPHEN
     Indication: PAIN
     Dosage: 325 MG, AS NEEDED
     Route: 048
     Dates: start: 2012
  16. DIGOXIN. [Concomitant]
     Active Substance: DIGOXIN
     Indication: HEART RATE ABNORMAL
     Dosage: 0.25 MG, DAILY
     Route: 048
     Dates: start: 200901
  17. DIGOXIN. [Concomitant]
     Active Substance: DIGOXIN
     Indication: CELLULITIS
  18. CARAFATE [Concomitant]
     Active Substance: SUCRALFATE
     Indication: ANXIETY
     Dosage: 1 GM
     Route: 065
     Dates: start: 20131121
  19. MYRBETRIQ [Concomitant]
     Active Substance: MIRABEGRON
     Indication: BLADDER DISORDER
  20. NEXIUM [Suspect]
     Active Substance: ESOMEPRAZOLE MAGNESIUM
     Indication: GASTROOESOPHAGEAL REFLUX DISEASE
     Dosage: 40 MG, 1X/DAY
     Route: 048
     Dates: start: 2003, end: 2004
  21. CRESTOR [Suspect]
     Active Substance: ROSUVASTATIN CALCIUM
     Indication: BLOOD CHOLESTEROL INCREASED
     Dosage: 40 MG, 1X/DAY
     Route: 048
     Dates: end: 201310
  22. OMEPRAZOLE. [Suspect]
     Active Substance: OMEPRAZOLE
     Indication: FLATULENCE
     Dosage: OTC, 20 MG DAILY
     Route: 048
  23. NEXIUM 24HR [Suspect]
     Active Substance: ESOMEPRAZOLE MAGNESIUM
     Indication: GASTROOESOPHAGEAL REFLUX DISEASE
     Dosage: 22.5 MG, DAILY
     Route: 048
     Dates: start: 201407
  24. OMEPRAZOLE. [Suspect]
     Active Substance: OMEPRAZOLE
     Indication: ERUCTATION
     Dosage: DAILY
     Route: 048
     Dates: start: 2012
  25. TOPROL XL [Suspect]
     Active Substance: METOPROLOL SUCCINATE
     Dosage: 0.5 DF, DAILY
     Route: 048
  26. CRESTOR [Suspect]
     Active Substance: ROSUVASTATIN CALCIUM
     Indication: ATHEROSCLEROSIS PROPHYLAXIS
     Dosage: 40 MG, DAILY
     Route: 048
  27. ALEVE [Concomitant]
     Active Substance: NAPROXEN SODIUM
     Indication: PAIN
     Dosage: 220 MG, AS NEEDED
     Route: 048
     Dates: start: 2012
  28. BACTRIM [Concomitant]
     Active Substance: SULFAMETHOXAZOLE\TRIMETHOPRIM
     Indication: CYSTITIS
  29. ELIQUIS [Concomitant]
     Active Substance: APIXABAN
     Indication: CELLULITIS
     Dosage: UNK
     Route: 048

REACTIONS (35)
  - Ulcer haemorrhage [Unknown]
  - Hypoacusis [Unknown]
  - Hiatus hernia [Unknown]
  - Palpitations [Unknown]
  - Product dose omission [Unknown]
  - Cataract [Unknown]
  - Stress [Unknown]
  - Weight decreased [Unknown]
  - Pain [Unknown]
  - Eructation [Unknown]
  - Flatulence [Unknown]
  - Joint swelling [Unknown]
  - Osteoarthritis [Not Recovered/Not Resolved]
  - Arthralgia [Not Recovered/Not Resolved]
  - Drug ineffective [Unknown]
  - Fatigue [Unknown]
  - Memory impairment [Unknown]
  - Hernia pain [Unknown]
  - Abdominal discomfort [Unknown]
  - Body height decreased [Not Recovered/Not Resolved]
  - Neuralgia [Unknown]
  - Deafness [Not Recovered/Not Resolved]
  - Coronary artery occlusion [Unknown]
  - Panic attack [Unknown]
  - Urinary tract infection [Unknown]
  - Blood cholesterol increased [Unknown]
  - Drug effect increased [Recovered/Resolved]
  - Depressed mood [Unknown]
  - Cystitis [Unknown]
  - Visual acuity reduced [Unknown]
  - Thrombosis [Recovered/Resolved]
  - Nervous system disorder [Unknown]
  - Cellulitis [Unknown]
  - Dyspnoea [Unknown]
  - Gastrooesophageal reflux disease [Unknown]

NARRATIVE: CASE EVENT DATE: 2003
